FAERS Safety Report 23370164 (Version 1)
Quarter: 2024Q1

REPORT INFORMATION
  Report Type: Report from Study
  Country: US (occurrence: US)
  Receive Date: 20240105
  Receipt Date: 20240105
  Transmission Date: 20240410
  Serious: No
  Sender: FDA-Public Use
  Company Number: US-OPELLA-2023OHG015693

PATIENT
  Age: 68 Year
  Sex: Female

DRUGS (1)
  1. ICY HOT PRO PAIN RELIEF [Suspect]
     Active Substance: CAMPHOR (SYNTHETIC)\MENTHOL
     Indication: Product used for unknown indication

REACTIONS (1)
  - Skin burning sensation [Unknown]
